FAERS Safety Report 15314031 (Version 3)
Quarter: 2018Q3

REPORT INFORMATION
  Report Type: Spontaneous
  Country: DE (occurrence: DE)
  Receive Date: 20180824
  Receipt Date: 20180914
  Transmission Date: 20181010
  Serious: Yes (Other)
  Sender: FDA-Public Use
  Company Number: DE-SUN PHARMACEUTICAL INDUSTRIES LTD-2018R1-182262

PATIENT
  Sex: Female

DRUGS (9)
  1. NOVORAPID [Concomitant]
     Active Substance: INSULIN ASPART
     Indication: TYPE 2 DIABETES MELLITUS
     Dosage: LONG?TERM MEDICATION
     Route: 058
  2. LETROZOL SUN 2,5 MG FILMTABLETTEN [Suspect]
     Active Substance: LETROZOLE
     Indication: BREAST CANCER
     Dosage: 1 X1
     Route: 048
     Dates: start: 20180301, end: 20180303
  3. VITALUX PLUS [Concomitant]
     Active Substance: VITAMINS
     Indication: MACULAR DEGENERATION
     Dosage: 1X1 LONG?TERM
     Route: 048
  4. ASS PUREN 100 MG TABLETTEN [Concomitant]
     Indication: PRODUCT USED FOR UNKNOWN INDICATION
     Dosage: LONG?TERM MEDICATION
     Route: 048
  5. LEVEMIR 100 [Concomitant]
     Indication: TYPE 2 DIABETES MELLITUS
     Dosage: LONG?TERM MEDICATION
     Route: 058
  6. MILGAMMA [Concomitant]
     Active Substance: VITAMIN B
     Indication: NEUROPATHY PERIPHERAL
     Dosage: 1X1 LONG?TERM
     Route: 048
  7. CAPTOPRIL COMP. ABZ 25 MG/12,5 MG TABLETTEN [Concomitant]
     Indication: PRODUCT USED FOR UNKNOWN INDICATION
     Dosage: LONG?TERM MEDICATION
     Route: 048
  8. ALLOPURINOL 100 HEUMANN [Concomitant]
     Indication: HYPERURICAEMIA
     Dosage: LONG?TERM MEDICATION
     Route: 048
  9. METOHEXAL SUCC 47,5 MG RETARDTABLETTEN [Concomitant]
     Indication: PRODUCT USED FOR UNKNOWN INDICATION
     Dosage: LONG?TERM MEDICATI
     Route: 048

REACTIONS (3)
  - Reaction to excipient [Unknown]
  - Malaise [Recovered/Resolved]
  - Vertigo [Recovered/Resolved]

NARRATIVE: CASE EVENT DATE: 20180301
